FAERS Safety Report 8286267-0 (Version None)
Quarter: 2012Q1

REPORT INFORMATION
  Report Type: 
  Country: None (occurrence: None)
  Receive Date: 20120314
  Receipt Date: 20100901
  Transmission Date: 20120608
  Serious: No
  Sender: FDA-Public Use
  Company Number: PHHY2010US59192

PATIENT
  Sex: Female

DRUGS (2)
  1. FANAPT [Suspect]
     Dosage: 6 MG, BID, ORAL
     Route: 048
  2. DIURETICS (NO INGREDIENTS/SUBSTANCES) [Concomitant]

REACTIONS (1)
  - HYPOTENSION [None]
